FAERS Safety Report 6615352-1 (Version None)
Quarter: 2010Q1

REPORT INFORMATION
  Report Type: 
  Country: None (occurrence: None)
  Receive Date: 20100305
  Receipt Date: 20090807
  Transmission Date: 20100710
  Serious: No
  Sender: FDA-Public Use
  Company Number: A0802150A

PATIENT
  Sex: Female

DRUGS (1)
  1. REQUIP XL [Suspect]
     Indication: DRUG USE FOR UNKNOWN INDICATION
     Dosage: 4MG UNKNOWN
     Route: 065

REACTIONS (1)
  - MALAISE [None]
